FAERS Safety Report 22119339 (Version 1)
Quarter: 2023Q1

REPORT INFORMATION
  Report Type: Spontaneous
  Country: US (occurrence: US)
  Receive Date: 20230321
  Receipt Date: 20230321
  Transmission Date: 20230417
  Serious: No
  Sender: FDA-Public Use
  Company Number: US-GSK-US2023AMR042477

PATIENT
  Sex: Female

DRUGS (1)
  1. FLUTICASONE FUROATE\VILANTEROL TRIFENATATE [Suspect]
     Active Substance: FLUTICASONE FUROATE\VILANTEROL TRIFENATATE
     Indication: Post-acute COVID-19 syndrome
     Dosage: UNK

REACTIONS (5)
  - Chest discomfort [Unknown]
  - Dysgeusia [Unknown]
  - Drug ineffective for unapproved indication [Unknown]
  - Off label use [Unknown]
  - Product complaint [Unknown]
